FAERS Safety Report 21156786 (Version 1)
Quarter: 2022Q3

REPORT INFORMATION
  Report Type: Spontaneous
  Country: JP (occurrence: JP)
  Receive Date: 20220801
  Receipt Date: 20220801
  Transmission Date: 20221027
  Serious: Yes (Other)
  Sender: FDA-Public Use
  Company Number: JP-PFIZER INC-PV202200031151

PATIENT
  Age: 73 Year
  Sex: Male

DRUGS (4)
  1. INLYTA [Suspect]
     Active Substance: AXITINIB
     Dosage: 10 MG
     Route: 048
     Dates: start: 201904, end: 201904
  2. INLYTA [Suspect]
     Active Substance: AXITINIB
     Dosage: 6 MG
     Route: 048
     Dates: start: 201904, end: 201912
  3. INLYTA [Suspect]
     Active Substance: AXITINIB
     Dosage: 4 MG
     Route: 048
     Dates: start: 201912, end: 202204
  4. INLYTA [Suspect]
     Active Substance: AXITINIB
     Dosage: 2 MG
     Route: 048
     Dates: start: 202204, end: 202207

REACTIONS (4)
  - Interstitial lung disease [Not Recovered/Not Resolved]
  - Swelling [Not Recovered/Not Resolved]
  - Diarrhoea [Not Recovered/Not Resolved]
  - Hypertension [Not Recovered/Not Resolved]

NARRATIVE: CASE EVENT DATE: 20190401
